FAERS Safety Report 8794184 (Version 1)
Quarter: 2012Q4

REPORT INFORMATION
  Report Type: 
  Country: US (occurrence: US)
  Receive Date: 20120918
  Receipt Date: 20120918
  Transmission Date: 20130627
  Serious: No
  Sender: FDA-Public Use
  Company Number: US-ASTRAZENECA-2012SE69667

PATIENT
  Age: 78 Year
  Sex: Female
  Weight: 67.6 kg

DRUGS (5)
  1. SYMBICORT PMDI [Suspect]
     Indication: CHRONIC OBSTRUCTIVE PULMONARY DISEASE
     Dosage: 80/4.5 DOSAGE STRENGTH - TWO PUFFS DAILY
     Route: 055
     Dates: start: 201207
  2. CARDIA XT [Concomitant]
  3. ALBUTEROL [Concomitant]
  4. POTASSIUM [Concomitant]
  5. ASPIRIN [Concomitant]

REACTIONS (8)
  - Asthenia [Unknown]
  - Gait disturbance [Unknown]
  - White blood cell count increased [Unknown]
  - Weight abnormal [Unknown]
  - Electrolyte imbalance [Unknown]
  - Dermatitis [Unknown]
  - Blood pressure fluctuation [Unknown]
  - Tremor [Unknown]
